FAERS Safety Report 7298197-1 (Version None)
Quarter: 2011Q1

REPORT INFORMATION
  Report Type: 
  Country: None (occurrence: None)
  Receive Date: 20110217
  Receipt Date: 20110209
  Transmission Date: 20110831
  Serious: Yes (Other)
  Sender: FDA-Public Use
  Company Number: US-US-EMD SERONO, INC.-233749J09USA

PATIENT
  Sex: Male
  Weight: 100 kg

DRUGS (3)
  1. STEROID TREATMENTS [Concomitant]
  2. REBIF [Suspect]
     Indication: MULTIPLE SCLEROSIS
     Route: 058
     Dates: start: 20070814
  3. CYMBALTA [Concomitant]
     Indication: DEPRESSION

REACTIONS (2)
  - MACULAR DEGENERATION [None]
  - PYREXIA [None]
